FAERS Safety Report 11394799 (Version 1)
Quarter: 2015Q3

REPORT INFORMATION
  Report Type: Spontaneous
  Country: US (occurrence: None)
  Receive Date: 20150817
  Receipt Date: 20150817
  Transmission Date: 20151125
  Serious: Yes (Hospitalization)
  Sender: FDA-Public Use
  Company Number: None

PATIENT
  Age: 33 Year
  Sex: Female
  Weight: 95.26 kg

DRUGS (1)
  1. CLINDAMYCIN [Suspect]
     Active Substance: CLINDAMYCIN\CLINDAMYCIN PHOSPHATE
     Indication: ROOT CANAL INFECTION
     Dates: start: 20150701, end: 20150710

REACTIONS (4)
  - Anal haemorrhage [None]
  - Vulvovaginal swelling [None]
  - Abdominal distension [None]
  - Abdominal pain [None]

NARRATIVE: CASE EVENT DATE: 20150813
